FAERS Safety Report 4874786-6 (Version None)
Quarter: 2006Q1

REPORT INFORMATION
  Report Type: 
  Country: None (occurrence: None)
  Receive Date: 20060104
  Receipt Date: 20060104
  Transmission Date: 20060701
  Serious: Yes (Life-Threatening)
  Sender: FDA-Public Use
  Company Number: None

PATIENT
  Age: 6 Year
  Sex: Female
  Weight: 33.6 kg

DRUGS (5)
  1. POLYGAM S/D [Suspect]
     Indication: STEVENS-JOHNSON SYNDROME
     Dosage: ONE TIME
     Dates: start: 20041005, end: 20041005
  2. ACETAMINOPHEN [Concomitant]
  3. TOBRADEX [Concomitant]
  4. ZANTAC [Concomitant]
  5. BENADRYL [Concomitant]

REACTIONS (8)
  - DEPRESSED LEVEL OF CONSCIOUSNESS [None]
  - DYSPNOEA [None]
  - ERYTHEMA MULTIFORME [None]
  - FEELING COLD [None]
  - HEART RATE INCREASED [None]
  - KAWASAKI'S DISEASE [None]
  - STEVENS-JOHNSON SYNDROME [None]
  - TREMOR [None]
